FAERS Safety Report 8532458-0 (Version None)
Quarter: 2012Q3

REPORT INFORMATION
  Report Type: 
  Country: None (occurrence: None)
  Receive Date: 20120716
  Receipt Date: 20120716
  Transmission Date: 20120928
  Serious: Yes (Other)
  Sender: FDA-Public Use
  Company Number: None

PATIENT
  Age: 67 Year
  Sex: Female
  Weight: 68.9467 kg

DRUGS (1)
  1. LEVOFLOXACIN [Suspect]
     Indication: PNEUMONIA
     Dosage: 1 PER DAY 7 DAYS
     Dates: start: 20111208, end: 20111215

REACTIONS (3)
  - NECK PAIN [None]
  - BACK PAIN [None]
  - MYALGIA [None]
